FAERS Safety Report 8355026 (Version 5)
Quarter: 2014Q1

REPORT INFORMATION
  Report Type: Spontaneous
  Country: US (occurrence: US)
  Receive Date: 20120125
  Receipt Date: 20140116
  Transmission Date: 20141002
  Serious: Yes (Other)
  Sender: FDA-Public Use
  Company Number: US-PFIZER INC-2012017254

PATIENT
  Sex: Female

DRUGS (2)
  1. EFFEXOR XR [Suspect]
     Indication: BIPOLAR DISORDER
     Dosage: 37.5 MG, 2X/DAY
     Route: 048
  2. VENLAFAXINE HCL [Suspect]
     Indication: BIPOLAR DISORDER
     Dosage: UNK

REACTIONS (12)
  - Renal failure [Unknown]
  - Hepatic failure [Unknown]
  - Renal disorder [Unknown]
  - Psoriasis [Unknown]
  - Skin discolouration [Unknown]
  - Mental disorder [Unknown]
  - Unevaluable event [Unknown]
  - Cardiac disorder [Unknown]
  - Dysgraphia [Unknown]
  - Feeling abnormal [Unknown]
  - Gastrointestinal disorder [Unknown]
  - Head discomfort [Unknown]
